FAERS Safety Report 9333438 (Version 3)
Quarter: 2013Q4

REPORT INFORMATION
  Report Type: Spontaneous
  Country: US (occurrence: US)
  Receive Date: 20130606
  Receipt Date: 20131126
  Transmission Date: 20140711
  Serious: Yes (Hospitalization)
  Sender: FDA-Public Use
  Company Number: US-B.I. PHARMACEUTICALS,INC./RIDGEFIELD-2013-BI-15783BP

PATIENT
  Sex: Female
  Weight: 72.57 kg

DRUGS (9)
  1. PRADAXA [Suspect]
     Indication: ANTICOAGULANT THERAPY
     Dosage: 300 MG
     Dates: start: 20111017, end: 20111227
  2. PRADAXA [Suspect]
     Indication: ATRIAL FIBRILLATION
  3. BUDESONIDE [Concomitant]
  4. LYRICA [Concomitant]
     Dates: start: 2010
  5. METOPROLOL [Concomitant]
     Dates: start: 2010
  6. MULTIVITAMIN [Concomitant]
     Dates: start: 2010
  7. RYTHMOL [Concomitant]
     Dates: start: 2010
  8. SOTALOL [Concomitant]
  9. AMIODARONE [Concomitant]
     Dosage: 200 MG

REACTIONS (4)
  - Gastrointestinal haemorrhage [Unknown]
  - Crohn^s disease [Unknown]
  - Renal failure acute [Unknown]
  - Haemorrhagic anaemia [Unknown]
